FAERS Safety Report 6915916-1 (Version None)
Quarter: 2010Q3

REPORT INFORMATION
  Report Type: 
  Country: None (occurrence: None)
  Receive Date: 20100810
  Receipt Date: 20100730
  Transmission Date: 20110219
  Serious: Yes (Other)
  Sender: FDA-Public Use
  Company Number: IT-JNJFOC-20100800452

PATIENT
  Age: 52 Year
  Sex: Female

DRUGS (5)
  1. REMICADE [Suspect]
     Indication: PRODUCT USED FOR UNKNOWN INDICATION
     Route: 042
  2. MEDROL [Concomitant]
  3. METHOTREXATE [Concomitant]
  4. FOLIN [Concomitant]
  5. EFFERALGAN [Concomitant]

REACTIONS (5)
  - COUGH [None]
  - CYTOMEGALOVIRUS INFECTION [None]
  - EPSTEIN-BARR VIRAEMIA [None]
  - LYMPHOCYTOSIS [None]
  - TOXOPLASMOSIS [None]
